FAERS Safety Report 4554675-7 (Version None)
Quarter: 2004Q4

REPORT INFORMATION
  Report Type: 
  Country: None (occurrence: None)
  Receive Date: 20041227
  Receipt Date: 20040922
  Transmission Date: 20050328
  Serious: No
  Sender: FDA-Public Use
  Company Number: US092563

PATIENT
  Sex: Male

DRUGS (1)
  1. SENSIPAR [Suspect]
     Indication: HYPERPARATHYROIDISM SECONDARY
     Dosage: 30 MG
     Dates: start: 20040601

REACTIONS (2)
  - BLOOD PARATHYROID HORMONE INCREASED [None]
  - THERAPEUTIC RESPONSE DECREASED [None]
